FAERS Safety Report 19960763 (Version 1)
Quarter: 2021Q4

REPORT INFORMATION
  Report Type: Spontaneous
  Country: FR (occurrence: FR)
  Receive Date: 20211016
  Receipt Date: 20211016
  Transmission Date: 20220303
  Serious: Yes (Hospitalization)
  Sender: FDA-Public Use
  Company Number: None

PATIENT
  Age: 35 Year
  Sex: Female
  Weight: 58 kg

DRUGS (3)
  1. AVASTIN [Suspect]
     Active Substance: BEVACIZUMAB
     Indication: Breast cancer
     Dosage: MOST RECENT DOSE PRIOR TO AE /JUN/2021
     Route: 065
     Dates: start: 20210412
  2. XELODA [Suspect]
     Active Substance: CAPECITABINE
     Indication: Breast cancer
     Dosage: NON CONNUE
     Route: 048
     Dates: start: 20210715
  3. PACLITAXEL [Suspect]
     Active Substance: PACLITAXEL
     Indication: Breast cancer
     Dosage: MOST RECENT DOSE PRIOR TO AE 10/JUN/2021
     Route: 042
     Dates: start: 20210412

REACTIONS (2)
  - Dermatomyositis [Recovering/Resolving]
  - Exfoliative rash [Recovering/Resolving]

NARRATIVE: CASE EVENT DATE: 20210601
